FAERS Safety Report 11868118 (Version 1)
Quarter: 2015Q4

REPORT INFORMATION
  Report Type: Spontaneous
  Country: US (occurrence: US)
  Receive Date: 20151224
  Receipt Date: 20151224
  Transmission Date: 20160305
  Serious: Yes (Death, Other)
  Sender: FDA-Public Use
  Company Number: US-TAKEDA-TPA2011A08820

PATIENT

DRUGS (6)
  1. HUMALOG [Concomitant]
     Active Substance: INSULIN LISPRO
     Dates: start: 2007
  2. DIABETA [Concomitant]
     Active Substance: GLYBURIDE
  3. LANTUS [Concomitant]
     Active Substance: INSULIN GLARGINE
     Dates: start: 2010
  4. METFORMIN [Concomitant]
     Active Substance: METFORMIN HYDROCHLORIDE
     Dates: start: 2007
  5. GLUCOTROL [Concomitant]
     Active Substance: GLIPIZIDE
     Dates: start: 2007
  6. ACTOS [Suspect]
     Active Substance: PIOGLITAZONE HYDROCHLORIDE
     Indication: TYPE 2 DIABETES MELLITUS
     Route: 048
     Dates: start: 200902, end: 2011

REACTIONS (2)
  - Death [Fatal]
  - Bladder transitional cell carcinoma [Unknown]

NARRATIVE: CASE EVENT DATE: 20100118
